FAERS Safety Report 18195247 (Version 2)
Quarter: 2020Q4

REPORT INFORMATION
  Report Type: Spontaneous
  Country: US (occurrence: US)
  Receive Date: 20200825
  Receipt Date: 20201129
  Transmission Date: 20210113
  Serious: Yes (Other)
  Sender: FDA-Public Use
  Company Number: US-JNJFOC-20200826308

PATIENT
  Sex: Female

DRUGS (2)
  1. INFLIXIMAB [Suspect]
     Active Substance: INFLIXIMAB
     Indication: SARCOIDOSIS
     Route: 065
  2. REMICADE [Suspect]
     Active Substance: INFLIXIMAB
     Indication: SARCOIDOSIS
     Route: 042
     Dates: end: 201912

REACTIONS (9)
  - Malaise [Unknown]
  - Dysstasia [Unknown]
  - Product use in unapproved indication [Unknown]
  - Cyclic vomiting syndrome [Unknown]
  - Burning sensation [Unknown]
  - Cluster headache [Unknown]
  - Muscle spasms [Unknown]
  - Hypoaesthesia [Unknown]
  - Off label use [Unknown]
